FAERS Safety Report 6202339-6 (Version None)
Quarter: 2009Q2

REPORT INFORMATION
  Report Type: 
  Country: None (occurrence: None)
  Receive Date: 20090520
  Receipt Date: 20090507
  Transmission Date: 20091009
  Serious: Yes (Other)
  Sender: FDA-Public Use
  Company Number: US-1169534

PATIENT
  Sex: Female

DRUGS (1)
  1. BSS [Suspect]
     Dosage: INTRAOCULAR
     Route: 031
     Dates: start: 20090429, end: 20090429

REACTIONS (4)
  - CORNEAL DISORDER [None]
  - FOREIGN BODY IN EYE [None]
  - PRODUCT STERILITY LACKING [None]
  - TOXIC ANTERIOR SEGMENT SYNDROME [None]
